FAERS Safety Report 7828073-4 (Version None)
Quarter: 2011Q4

REPORT INFORMATION
  Report Type: 
  Country: None (occurrence: None)
  Receive Date: 20111019
  Receipt Date: 20111007
  Transmission Date: 20120403
  Serious: Yes (Hospitalization, Other)
  Sender: FDA-Public Use
  Company Number: 2011MA014113

PATIENT
  Age: 73 Year
  Sex: Female

DRUGS (4)
  1. SIMVASTATIN [Concomitant]
  2. AMLODIPINE [Concomitant]
  3. CANDESARTAN CILEXETIL [Concomitant]
  4. LOSARTAN POTASSIUM [Suspect]
     Indication: HYPERTENSION
     Dosage: 100 MG; PO
     Route: 048
     Dates: start: 20100908, end: 20110309

REACTIONS (1)
  - HEPATITIS [None]
